FAERS Safety Report 5203334-6 (Version None)
Quarter: 2006Q4

REPORT INFORMATION
  Report Type: 
  Country: None (occurrence: None)
  Receive Date: 20061016
  Receipt Date: 20060508
  Transmission Date: 20070319
  Serious: Yes (Other)
  Sender: FDA-Public Use
  Company Number: 2006061728

PATIENT
  Age: 35 Year
  Sex: Female
  Weight: 46.2669 kg

DRUGS (2)
  1. NEURONTIN [Suspect]
     Indication: BIPOLAR DISORDER
     Dosage: UNKNOWN (UNKNOWN) , UNKNOWN
  2. ZYPREXA [Suspect]
     Indication: ILL-DEFINED DISORDER
     Dosage: UNKNOWN (UNKNOWN), UNKNOWN

REACTIONS (1)
  - MYOCARDIAL INFARCTION [None]
